FAERS Safety Report 8479268-0 (Version None)
Quarter: 2012Q2

REPORT INFORMATION
  Report Type: 
  Country: None (occurrence: None)
  Receive Date: 20120629
  Receipt Date: 20120620
  Transmission Date: 20120825
  Serious: Yes (Hospitalization)
  Sender: FDA-Public Use
  Company Number: US-GLAXOSMITHKLINE-A0981827A

PATIENT
  Age: 52 Year
  Sex: Female

DRUGS (17)
  1. ADVAIR DISKUS 100/50 [Suspect]
     Indication: BRONCHITIS CHRONIC
     Dosage: 1PUFF TWICE PER DAY
     Route: 055
  2. SERTRALINE HYDROCHLORIDE [Concomitant]
  3. FOLIC ACID [Concomitant]
  4. ZINC SULFATE [Concomitant]
  5. LEVOXYL [Concomitant]
  6. ASPIRIN [Concomitant]
  7. PRAMIPEXOLE DIHYCHLORIDE [Concomitant]
  8. CENTRUM [Concomitant]
  9. UNSPECIFIED MEDICATION [Concomitant]
  10. SINGULAIR [Concomitant]
  11. ZEGERID [Concomitant]
  12. SEROQUEL [Concomitant]
  13. METOPROLOL SUCCINATE [Concomitant]
  14. LISINOPRIL [Concomitant]
  15. CRESTOR [Concomitant]
  16. POTASSIUM CHLORIDE [Concomitant]
  17. FLONASE [Concomitant]

REACTIONS (3)
  - BRONCHITIS [None]
  - ASTHMA [None]
  - DYSPNOEA [None]
